FAERS Safety Report 4280827-X (Version None)
Quarter: 2004Q1

REPORT INFORMATION
  Report Type: 
  Country: None (occurrence: None)
  Receive Date: 20040128
  Receipt Date: 20040128
  Transmission Date: 20041129
  Serious: No
  Sender: FDA-Public Use
  Company Number: None

PATIENT
  Age: 39 Year
  Sex: Female
  Weight: 57.1532 kg

DRUGS (1)
  1. LEXAPRO [Suspect]
     Indication: ANXIETY
     Dosage: 10 MG 1 TAB DAI ORAL
     Route: 048
     Dates: start: 20040119, end: 20040119

REACTIONS (21)
  - ABNORMAL BEHAVIOUR [None]
  - ABNORMAL DREAMS [None]
  - ANOREXIA [None]
  - ANXIETY [None]
  - DEPRESSION [None]
  - DIZZINESS [None]
  - DYSURIA [None]
  - FEELING ABNORMAL [None]
  - FEELING HOT [None]
  - HALLUCINATION, VISUAL [None]
  - HEARING IMPAIRED [None]
  - HEART RATE INCREASED [None]
  - HYPOAESTHESIA [None]
  - PANIC REACTION [None]
  - PARANOIA [None]
  - RETCHING [None]
  - SUICIDAL IDEATION [None]
  - THINKING ABNORMAL [None]
  - VISUAL DISTURBANCE [None]
  - VOMITING [None]
  - WEIGHT DECREASED [None]
